FAERS Safety Report 16893648 (Version 4)
Quarter: 2022Q2

REPORT INFORMATION
  Report Type: Report from Study
  Country: US (occurrence: None)
  Receive Date: 20191008
  Receipt Date: 20220509
  Transmission Date: 20220720
  Serious: Yes (Hospitalization, Other)
  Sender: FDA-Public Use
  Company Number: US-ROCHE-2143160

PATIENT
  Age: 68 Year
  Sex: Male
  Weight: 77.5 kg

DRUGS (2)
  1. ATEZOLIZUMAB [Suspect]
     Active Substance: ATEZOLIZUMAB
     Indication: Cholangiocarcinoma
     Route: 041
     Dates: start: 20180424
  2. COBIMETINIB [Suspect]
     Active Substance: COBIMETINIB
     Indication: Cholangiocarcinoma
     Dosage: MOST RECENT DOSE ON 07/MAY/2018
     Route: 048
     Dates: start: 20180424

REACTIONS (8)
  - Blood bilirubin increased [Not Recovered/Not Resolved]
  - Atrial fibrillation [Recovered/Resolved]
  - Dehydration [Recovered/Resolved]
  - Cholangitis [Recovered/Resolved]
  - Biliary obstruction [Recovered/Resolved]
  - Rash maculo-papular [Unknown]
  - Blood alkaline phosphatase increased [Unknown]
  - Cholecystitis infective [Unknown]

NARRATIVE: CASE EVENT DATE: 20180604
